FAERS Safety Report 12629947 (Version 1)
Quarter: 2016Q3

REPORT INFORMATION
  Report Type: Spontaneous
  Country: US (occurrence: US)
  Receive Date: 20160808
  Receipt Date: 20160808
  Transmission Date: 20161109
  Serious: Yes (Other)
  Sender: FDA-Public Use
  Company Number: US-BAYER-2016-148363

PATIENT
  Age: 28 Year
  Sex: Female

DRUGS (1)
  1. MIRENA [Suspect]
     Active Substance: LEVONORGESTREL
     Indication: PRODUCT USED FOR UNKNOWN INDICATION
     Dosage: 20 MG/24HR, CONT
     Route: 015
     Dates: start: 2015

REACTIONS (6)
  - Hypomenorrhoea [Unknown]
  - Device dislocation [Unknown]
  - Pregnancy with contraceptive device [Unknown]
  - Nausea [Unknown]
  - Drug ineffective [None]
  - Vomiting [Unknown]

NARRATIVE: CASE EVENT DATE: 2015
